FAERS Safety Report 7205119-8 (Version None)
Quarter: 2010Q4

REPORT INFORMATION
  Report Type: 
  Country: None (occurrence: None)
  Receive Date: 20101230
  Receipt Date: 20101221
  Transmission Date: 20110411
  Serious: Yes (Hospitalization)
  Sender: FDA-Public Use
  Company Number: DE-AMGEN-DEUSP2010012270

PATIENT

DRUGS (5)
  1. ENBREL [Suspect]
     Indication: RHEUMATOID ARTHRITIS
     Dosage: 50 MG, WEEKLY
     Dates: start: 20100322
  2. ENBREL [Suspect]
     Indication: POLYARTHRITIS
  3. AMLODIPINE/VALSARTAN [Suspect]
     Indication: BLOOD PRESSURE
     Dosage: UNK
  4. ARAVA [Concomitant]
  5. GLUCOCORTICOIDS [Concomitant]

REACTIONS (5)
  - OEDEMA PERIPHERAL [None]
  - PARAESTHESIA [None]
  - PARESIS [None]
  - SENSATION OF PRESSURE [None]
  - THROAT TIGHTNESS [None]
